FAERS Safety Report 20821196 (Version 1)
Quarter: 2022Q2

REPORT INFORMATION
  Report Type: Spontaneous
  Country: GB (occurrence: GB)
  Receive Date: 20220512
  Receipt Date: 20220512
  Transmission Date: 20220721
  Serious: Yes (Other)
  Sender: FDA-Public Use
  Company Number: None

PATIENT
  Sex: Female

DRUGS (1)
  1. CIPROFLOXACIN [Suspect]
     Active Substance: CIPROFLOXACIN
     Indication: Lower respiratory tract infection
     Dosage: 500 MG, BID
     Dates: start: 20220226, end: 20220303

REACTIONS (16)
  - Tongue erythema [Recovered/Resolved]
  - Muscle twitching [Recovering/Resolving]
  - Agitation [Recovered/Resolved]
  - Urticaria [Recovered/Resolved]
  - Anal candidiasis [Recovered/Resolved]
  - Vulvovaginal candidiasis [Recovered/Resolved]
  - Fatigue [Recovering/Resolving]
  - Myalgia [Recovered/Resolved]
  - Dizziness [Recovered/Resolved]
  - Diarrhoea [Recovered/Resolved]
  - Glossodynia [Recovered/Resolved]
  - Paraesthesia [Recovering/Resolving]
  - Erythema [Recovering/Resolving]
  - Palpitations [Recovered/Resolved]
  - Vomiting [Recovered/Resolved]
  - Arthralgia [None]

NARRATIVE: CASE EVENT DATE: 20220226
